FAERS Safety Report 6263643-9 (Version None)
Quarter: 2009Q3

REPORT INFORMATION
  Report Type: 
  Country: None (occurrence: None)
  Receive Date: 20090710
  Receipt Date: 20090703
  Transmission Date: 20100115
  Serious: Yes (Hospitalization)
  Sender: FDA-Public Use
  Company Number: FR-ROCHE-641781

PATIENT
  Sex: Male

DRUGS (4)
  1. COPEGUS [Suspect]
     Indication: HEPATITIS C
     Route: 058
     Dates: start: 20081001, end: 20090520
  2. COMPETACT [Suspect]
     Route: 048
     Dates: start: 20081101, end: 20090525
  3. PEGASYS [Concomitant]
     Indication: HEPATITIS C
     Dates: start: 20081001
  4. PEGASYS [Concomitant]
     Dates: start: 20090511, end: 20090520

REACTIONS (6)
  - DYSPNOEA [None]
  - INFLUENZA LIKE ILLNESS [None]
  - OEDEMA PERIPHERAL [None]
  - PERICARDITIS [None]
  - RIGHT VENTRICULAR FAILURE [None]
  - TACHYCARDIA [None]
